FAERS Safety Report 7373706-2 (Version None)
Quarter: 2011Q1

REPORT INFORMATION
  Report Type: 
  Country: None (occurrence: None)
  Receive Date: 20110314
  Receipt Date: 20110301
  Transmission Date: 20110831
  Serious: Yes (Other)
  Sender: FDA-Public Use
  Company Number: DKLU1068889

PATIENT

DRUGS (2)
  1. TROPICAMIDE (TROPICAMIDE) (0.5 %) [Concomitant]
  2. SABRIL [Suspect]
     Indication: PARTIAL SEIZURES

REACTIONS (3)
  - VISUAL FIELD DEFECT [None]
  - TOXICITY TO VARIOUS AGENTS [None]
  - RETINAL DISORDER [None]
